FAERS Safety Report 13193354 (Version 2)
Quarter: 2017Q1

REPORT INFORMATION
  Report Type: Report from Study
  Country: IT (occurrence: IT)
  Receive Date: 20170207
  Receipt Date: 20170301
  Transmission Date: 20170428
  Serious: Yes (Other)
  Sender: FDA-Public Use
  Company Number: IT-SA-2017SA016321

PATIENT
  Age: 34 Year
  Sex: Male

DRUGS (3)
  1. CEREZYME [Suspect]
     Active Substance: IMIGLUCERASE
     Dosage: DOSE: 4 VIALS
     Route: 041
     Dates: start: 20140221
  2. ACETYLCARNITINE [Concomitant]
     Active Substance: ACETYLCARNITINE
     Dosage: 1 BOTTLE DAILY, FROM MANY YEARS
  3. MINIAS [Concomitant]
     Active Substance: LORMETAZEPAM
     Dosage: IN THE EVENING BEFORE BEDTIME

REACTIONS (3)
  - Swelling face [Recovered/Resolved]
  - Speech disorder [Recovered/Resolved]
  - Eye swelling [Recovered/Resolved]

NARRATIVE: CASE EVENT DATE: 20170127
